FAERS Safety Report 7512725-X (Version None)
Quarter: 2011Q2

REPORT INFORMATION
  Report Type: 
  Country: None (occurrence: None)
  Receive Date: 20110531
  Receipt Date: 20110523
  Transmission Date: 20111010
  Serious: Yes (Hospitalization)
  Sender: FDA-Public Use
  Company Number: SE-ASTRAZENECA-2009SE06061

PATIENT
  Age: 44 Year
  Sex: Female

DRUGS (1)
  1. SEROQUEL [Suspect]
     Dosage: 40 TABLETS, TOTAL AMOUNT TO 1 GM
     Route: 048

REACTIONS (3)
  - OVERDOSE [None]
  - TACHYCARDIA [None]
  - HYPERTENSION [None]
